FAERS Safety Report 15121601 (Version 1)
Quarter: 2018Q3

REPORT INFORMATION
  Report Type: Spontaneous
  Country: US (occurrence: US)
  Receive Date: 20180613
  Receipt Date: 20180613
  Transmission Date: 20181010
  Serious: Yes (Disabling, Other)
  Sender: FDA-Public Use
  Company Number: None

PATIENT
  Age: 65 Year
  Sex: Female

DRUGS (24)
  1. DOCUSATE SOD CAP [Concomitant]
  2. BIOTIN TAB [Concomitant]
  3. BASAGLAR [Concomitant]
     Active Substance: INSULIN GLARGINE
  4. CABOMETYX [Suspect]
     Active Substance: CABOZANTINIB S-MALATE
     Indication: RENAL CANCER
     Route: 048
     Dates: start: 20180518, end: 20180613
  5. ASPIRIN. [Concomitant]
     Active Substance: ASPIRIN
  6. AMOX/K CLAV [Concomitant]
     Active Substance: AMOXICILLIN\CLAVULANATE POTASSIUM
  7. PROPRANOLOL [Concomitant]
     Active Substance: PROPRANOLOL HYDROCHLORIDE
  8. CEPHALEXIN. [Concomitant]
     Active Substance: CEPHALEXIN
  9. COMBIVENT [Concomitant]
     Active Substance: ALBUTEROL SULFATE\IPRATROPIUM BROMIDE
  10. PROLIA [Concomitant]
     Active Substance: DENOSUMAB
  11. IBUPROFEN. [Concomitant]
     Active Substance: IBUPROFEN
  12. CALCITROL CAP [Concomitant]
  13. NYSTATIN. [Concomitant]
     Active Substance: NYSTATIN
  14. GABAPENTIN. [Concomitant]
     Active Substance: GABAPENTIN
  15. RANITIDINE. [Concomitant]
     Active Substance: RANITIDINE
  16. NOVOLOG [Concomitant]
     Active Substance: INSULIN ASPART
  17. VITAMIN D3 2000 UNIT [Concomitant]
  18. MULTI VITAMIN [Concomitant]
     Active Substance: VITAMINS
  19. FERROUS SULF [Concomitant]
     Active Substance: FERROUS SULFATE
  20. GLUCOSE [Concomitant]
     Active Substance: DEXTROSE
  21. VITAMIN D2 [Concomitant]
     Active Substance: ERGOCALCIFEROL
  22. TRMADOL [Concomitant]
     Active Substance: TRAMADOL
  23. LIDOCAINE OINT [Concomitant]
  24. FLUTICASONE. [Concomitant]
     Active Substance: FLUTICASONE

REACTIONS (3)
  - Skin ulcer [None]
  - Acne [None]
  - Dry skin [None]

NARRATIVE: CASE EVENT DATE: 20180612
